FAERS Safety Report 13544847 (Version 2)
Quarter: 2017Q2

REPORT INFORMATION
  Report Type: Report from Study
  Country: MX (occurrence: MX)
  Receive Date: 20170515
  Receipt Date: 20170526
  Transmission Date: 20170830
  Serious: Yes (Death, Other)
  Sender: FDA-Public Use
  Company Number: PHHY2017MX070363

PATIENT
  Age: 86 Year
  Sex: Female

DRUGS (3)
  1. METOPROLOL. [Concomitant]
     Active Substance: METOPROLOL
     Indication: PRODUCT USED FOR UNKNOWN INDICATION
     Route: 065
  2. DIOVAN [Suspect]
     Active Substance: VALSARTAN
     Indication: HYPERTENSION
     Dosage: 1 DF, BID, (1 IN THE MORNING AND 1 AT NIGHT)
     Route: 048
     Dates: start: 201602, end: 20170429
  3. OMEPRAZOLE. [Concomitant]
     Active Substance: OMEPRAZOLE
     Indication: PRODUCT USED FOR UNKNOWN INDICATION
     Route: 065

REACTIONS (9)
  - Arrhythmia [Fatal]
  - Decreased appetite [Fatal]
  - Head injury [Recovered/Resolved]
  - Cerebrovascular accident [Fatal]
  - Inappropriate schedule of drug administration [Recovered/Resolved]
  - Oedema [Fatal]
  - Fall [Recovered/Resolved]
  - Bradycardia [Fatal]
  - Balance disorder [Recovered/Resolved]

NARRATIVE: CASE EVENT DATE: 20170414
